FAERS Safety Report 8542546-0 (Version None)
Quarter: 2012Q3

REPORT INFORMATION
  Report Type: 
  Country: None (occurrence: None)
  Receive Date: 20120726
  Receipt Date: 20120718
  Transmission Date: 20120928
  Serious: Yes (Death, Other)
  Sender: FDA-Public Use
  Company Number: US-009507513-2011SP000809

PATIENT

DRUGS (2)
  1. NUVARING [Suspect]
     Dosage: UNK
     Dates: start: 20080901, end: 20090101
  2. NUVARING [Suspect]
     Indication: CONTRACEPTION
     Dosage: UNK
     Dates: start: 20070101

REACTIONS (7)
  - ABDOMINAL PAIN [None]
  - OROPHARYNGEAL PAIN [None]
  - UTERINE SPASM [None]
  - SINUSITIS [None]
  - ABORTION SPONTANEOUS [None]
  - PULMONARY EMBOLISM [None]
  - VIRAL INFECTION [None]
